FAERS Safety Report 16840701 (Version 2)
Quarter: 2019Q3

REPORT INFORMATION
  Report Type: Report from Study
  Country: JP (occurrence: JP)
  Receive Date: 20190923
  Receipt Date: 20190923
  Transmission Date: 20191005
  Serious: Yes (Hospitalization)
  Sender: FDA-Public Use
  Company Number: JP-EISAI MEDICAL RESEARCH-EC-2019-062367

PATIENT
  Age: 76 Year
  Sex: Male

DRUGS (11)
  1. E KEPPRA [Concomitant]
     Active Substance: LEVETIRACETAM
  2. TSUMURA JUZENTAIHOTO EXTRACT GRANULES FOR ETHICAL USE [Concomitant]
  3. LIXIANA OD [Concomitant]
     Active Substance: EDOXABAN TOSYLATE
  4. TSUMURA GOREISAN EXTRACT GRANULES FOR ETHICAL USE [Concomitant]
  5. ROZEREM [Concomitant]
     Active Substance: RAMELTEON
  6. ROSUVASTATIN. [Concomitant]
     Active Substance: ROSUVASTATIN
  7. FYCOMPA [Suspect]
     Active Substance: PERAMPANEL
     Indication: PARTIAL SEIZURES
     Route: 048
     Dates: start: 20180228, end: 20180315
  8. AZILVA [Concomitant]
     Active Substance: AZILSARTAN KAMEDOXOMIL
  9. CILNIDIPINE [Concomitant]
     Active Substance: CILNIDIPINE
  10. TAKECAB [Concomitant]
     Active Substance: VONOPRAZAN FUMURATE
  11. BIOFERMIN [Concomitant]
     Active Substance: DIETARY SUPPLEMENT\PROBIOTICS

REACTIONS (1)
  - Gastrointestinal necrosis [Recovering/Resolving]

NARRATIVE: CASE EVENT DATE: 20180315
